FAERS Safety Report 21493027 (Version 1)
Quarter: 2022Q4

REPORT INFORMATION
  Report Type: Spontaneous
  Country: BE (occurrence: BE)
  Receive Date: 20221021
  Receipt Date: 20221021
  Transmission Date: 20230113
  Serious: Yes (Hospitalization, Other)
  Sender: FDA-Public Use
  Company Number: BE-TEVA-2022-BE-2818003

PATIENT
  Age: 65 Year
  Sex: Female
  Weight: 54 kg

DRUGS (2)
  1. PEMETREXED MONOHYDRATE [Suspect]
     Active Substance: PEMETREXED MONOHYDRATE
     Indication: Lung neoplasm malignant
     Route: 042
  2. PEMETREXED MONOHYDRATE [Suspect]
     Active Substance: PEMETREXED MONOHYDRATE
     Dosage: LAST ADMINISTRATION WAS ON 26-SEP-2022
     Route: 042
     Dates: start: 20220607

REACTIONS (12)
  - Terminal ileitis [Not Recovered/Not Resolved]
  - Neutropenia [Not Recovered/Not Resolved]
  - Diarrhoea [Not Recovered/Not Resolved]
  - Abdominal pain [Not Recovered/Not Resolved]
  - Nausea [Not Recovered/Not Resolved]
  - Vomiting [Not Recovered/Not Resolved]
  - Pyrexia [Not Recovered/Not Resolved]
  - Pancytopenia [Not Recovered/Not Resolved]
  - Acute kidney injury [Not Recovered/Not Resolved]
  - Hepatic function abnormal [Not Recovered/Not Resolved]
  - Hypokalaemia [Not Recovered/Not Resolved]
  - C-reactive protein increased [Unknown]

NARRATIVE: CASE EVENT DATE: 20221001
